FAERS Safety Report 11810993 (Version 1)
Quarter: 2015Q4

REPORT INFORMATION
  Report Type: Spontaneous
  Country: US (occurrence: US)
  Receive Date: 20151208
  Receipt Date: 20151208
  Transmission Date: 20160305
  Serious: No
  Sender: FDA-Public Use
  Company Number: US-GALDERMA-US15000619

PATIENT
  Sex: Female

DRUGS (1)
  1. METRONIDAZOLE LOTION (METRONIDAZOLE) 0.75% [Suspect]
     Active Substance: METRONIDAZOLE
     Indication: PRODUCT USED FOR UNKNOWN INDICATION
     Dosage: 0.75%
     Route: 061

REACTIONS (2)
  - Rash [Unknown]
  - Pruritus [Unknown]
